FAERS Safety Report 5386525-3 (Version None)
Quarter: 2007Q3

REPORT INFORMATION
  Report Type: 
  Country: None (occurrence: None)
  Receive Date: 20070710
  Receipt Date: 20070419
  Transmission Date: 20080115
  Serious: Yes (Other)
  Sender: FDA-Public Use
  Company Number: 8024971

PATIENT
  Age: 28 Year
  Sex: Female

DRUGS (8)
  1. KEPPRA [Suspect]
     Indication: CONVULSION
     Dosage: NI PO
     Route: 048
     Dates: start: 20030122
  2. KEPPRA [Suspect]
     Indication: EPILEPSY
     Dosage: NI PO
     Route: 048
     Dates: start: 20030122
  3. TOPAMAX [Concomitant]
  4. ALLEGRA [Concomitant]
  5. TRILEPTAL [Concomitant]
  6. CHLORPROMAZINE [Concomitant]
  7. PROMETHAZINE [Concomitant]
  8. PROMETHAZINE [Concomitant]

REACTIONS (1)
  - THERAPEUTIC AGENT TOXICITY [None]
